FAERS Safety Report 6130002-9 (Version None)
Quarter: 2009Q1

REPORT INFORMATION
  Report Type: 
  Country: None (occurrence: None)
  Receive Date: 20090323
  Receipt Date: 20090323
  Transmission Date: 20090719
  Serious: Yes (Hospitalization)
  Sender: FDA-Public Use
  Company Number: None

PATIENT
  Age: 72 Year
  Sex: Male
  Weight: 105.6881 kg

DRUGS (12)
  1. CIPROFLAXACIN [Suspect]
     Indication: DECUBITUS ULCER
     Dosage: 500MG BID PO 2 DOSES
     Route: 048
     Dates: start: 20090315, end: 20090316
  2. SULFAMETHOXAZOLE AND TRIMETHOPRIM [Suspect]
     Indication: DECUBITUS ULCER
     Dosage: DOUBLE STRENGTH TAB BID PO 2 DOSES
     Route: 048
     Dates: start: 20090316, end: 20090317
  3. SILVADENE [Concomitant]
  4. METOPROLOL [Concomitant]
  5. GLUCOPHAGE [Concomitant]
  6. DIOVAN [Concomitant]
  7. LOTREL [Concomitant]
  8. CELEBREX [Concomitant]
  9. HYDROCHLOROTHIAZIDE [Concomitant]
  10. GLUCOTROL [Concomitant]
  11. ADVICOR [Concomitant]
  12. PENTOXYPHYLLINE [Concomitant]

REACTIONS (2)
  - ERYTHEMA [None]
  - RASH GENERALISED [None]
